FAERS Safety Report 5334180-0 (Version None)
Quarter: 2007Q2

REPORT INFORMATION
  Report Type: 
  Country: None (occurrence: None)
  Receive Date: 20070523
  Receipt Date: 20070523
  Transmission Date: 20071010
  Serious: Yes (Life-Threatening)
  Sender: FDA-Public Use
  Company Number: None

PATIENT
  Age: 53 Year
  Sex: Female
  Weight: 21.3191 kg

DRUGS (1)
  1. AMLODIPINE BESYLATE [Suspect]
     Dosage: 10 MG DAILY PO
     Route: 048

REACTIONS (1)
  - ANAPHYLACTIC REACTION [None]
